FAERS Safety Report 6357242-8 (Version None)
Quarter: 2009Q3

REPORT INFORMATION
  Report Type: 
  Country: None (occurrence: None)
  Receive Date: 20090916
  Receipt Date: 20090914
  Transmission Date: 20100115
  Serious: Yes (Other)
  Sender: FDA-Public Use
  Company Number: US-RB-020377-09

PATIENT
  Sex: Female

DRUGS (1)
  1. SUBOXONE [Suspect]
     Indication: PAIN
     Dosage: UNKNOWN DOSE
     Route: 060
     Dates: start: 20090701, end: 20090901

REACTIONS (2)
  - HALLUCINATIONS, MIXED [None]
  - ROAD TRAFFIC ACCIDENT [None]
